FAERS Safety Report 11986839 (Version 1)
Quarter: 2016Q1

REPORT INFORMATION
  Report Type: Spontaneous
  Country: US (occurrence: US)
  Receive Date: 20160202
  Receipt Date: 20160202
  Transmission Date: 20160526
  Serious: No
  Sender: FDA-Public Use
  Company Number: US-UCBSA-2014014011

PATIENT
  Age: 17 Month
  Sex: Female

DRUGS (2)
  1. KEPPRA [Suspect]
     Active Substance: LEVETIRACETAM
     Dosage: 0.9 ML, 2X/DAY (BID)
  2. KEPPRA [Suspect]
     Active Substance: LEVETIRACETAM
     Dosage: INCREASED THE DOSE TO 1.4 ML

REACTIONS (4)
  - Drug ineffective [Unknown]
  - Seizure [Unknown]
  - Abnormal behaviour [Unknown]
  - Malaise [Unknown]
